FAERS Safety Report 20462337 (Version 5)
Quarter: 2022Q4

REPORT INFORMATION
  Report Type: Report from Study
  Country: LB (occurrence: LB)
  Receive Date: 20220211
  Receipt Date: 20221208
  Transmission Date: 20230113
  Serious: Yes (Other)
  Sender: FDA-Public Use
  Company Number: LB-NOVARTISPH-NVSC2021LB201663

PATIENT
  Age: 5 Year
  Sex: Female
  Weight: 17 kg

DRUGS (5)
  1. JADENU [Suspect]
     Active Substance: DEFERASIROX
     Indication: Iron overload
     Dosage: 180 MG
     Route: 048
     Dates: start: 20210304
  2. JADENU [Suspect]
     Active Substance: DEFERASIROX
     Indication: Thalassaemia
     Dosage: 360 MG
     Route: 048
     Dates: start: 20210403
  3. JADENU [Suspect]
     Active Substance: DEFERASIROX
     Dosage: 540 MG, QD (FOR 2 MONTHS)
     Route: 065
  4. JADENU [Suspect]
     Active Substance: DEFERASIROX
     Dosage: 360 MG
     Route: 048
     Dates: start: 20210715
  5. JADENU [Suspect]
     Active Substance: DEFERASIROX
     Dosage: 360 MG
     Route: 048
     Dates: start: 20210715

REACTIONS (4)
  - Serum ferritin increased [Not Recovered/Not Resolved]
  - Hepatic enzyme increased [Not Recovered/Not Resolved]
  - Diarrhoea [Not Recovered/Not Resolved]
  - Product administration error [Not Recovered/Not Resolved]

NARRATIVE: CASE EVENT DATE: 20210801
